FAERS Safety Report 6765835-9 (Version None)
Quarter: 2010Q2

REPORT INFORMATION
  Report Type: 
  Country: None (occurrence: None)
  Receive Date: 20100611
  Receipt Date: 20100602
  Transmission Date: 20101027
  Serious: Yes (Other)
  Sender: FDA-Public Use
  Company Number: PHHY2010JP11177

PATIENT
  Age: 1 Week

DRUGS (3)
  1. TEGRETOL [Suspect]
     Dosage: UNK
     Route: 064
  2. EXCEGRAN [Concomitant]
     Route: 064
  3. GABAPENTIN [Concomitant]
     Route: 064

REACTIONS (5)
  - DRUG EXPOSURE DURING PREGNANCY [None]
  - DRUG WITHDRAWAL SYNDROME NEONATAL [None]
  - FEELING ABNORMAL [None]
  - METABOLIC ACIDOSIS [None]
  - RESPIRATORY DISORDER [None]
